FAERS Safety Report 10191166 (Version 1)
Quarter: 2014Q2

REPORT INFORMATION
  Report Type: Spontaneous
  Country: US (occurrence: US)
  Receive Date: 20140523
  Receipt Date: 20140523
  Transmission Date: 20141212
  Serious: No
  Sender: FDA-Public Use
  Company Number: US-009507513-1404USA014311

PATIENT
  Age: 66 Year
  Sex: Female
  Weight: 64.4 kg

DRUGS (1)
  1. MIRALAX [Suspect]
     Indication: PRODUCT USED FOR UNKNOWN INDICATION
     Dosage: 17 G, BID
     Route: 048
     Dates: start: 201306

REACTIONS (2)
  - Overdose [Unknown]
  - Drug prescribing error [Unknown]
